FAERS Safety Report 9360612 (Version 4)
Quarter: 2015Q1

REPORT INFORMATION
  Report Type: Report from Study
  Country: NL (occurrence: NL)
  Receive Date: 20130621
  Receipt Date: 20150318
  Transmission Date: 20150721
  Serious: Yes (Hospitalization)
  Sender: FDA-Public Use
  Company Number: NL-SANOFI-AVENTIS-2013SA061587

PATIENT
  Age: 56 Year
  Sex: Male

DRUGS (6)
  1. AUGMENTIN [Concomitant]
     Active Substance: AMOXICILLIN\CLAVULANATE POTASSIUM
     Dates: start: 20130528, end: 20130608
  2. CABAZITAXEL [Suspect]
     Active Substance: CABAZITAXEL
     Indication: PROSTATE CANCER METASTATIC
     Route: 042
     Dates: start: 20130305, end: 20130305
  3. CABAZITAXEL [Suspect]
     Active Substance: CABAZITAXEL
     Indication: PROSTATE CANCER METASTATIC
     Route: 042
     Dates: start: 20130528, end: 20130528
  4. BUDESONIDE. [Suspect]
     Active Substance: BUDESONIDE
     Indication: PROSTATE CANCER METASTATIC
     Route: 065
  5. PREDNISONE. [Suspect]
     Active Substance: PREDNISONE
     Indication: PROSTATE CANCER METASTATIC
     Route: 048
  6. PREDNISONE. [Concomitant]
     Active Substance: PREDNISONE
     Dates: start: 20121016

REACTIONS (2)
  - Febrile neutropenia [Recovered/Resolved]
  - Anorectal disorder [Recovering/Resolving]

NARRATIVE: CASE EVENT DATE: 20130608
